FAERS Safety Report 4650453-9 (Version None)
Quarter: 2005Q2

REPORT INFORMATION
  Report Type: 
  Country: None (occurrence: None)
  Receive Date: 20050429
  Receipt Date: 20050418
  Transmission Date: 20051028
  Serious: Yes (Other)
  Sender: FDA-Public Use
  Company Number: 2005056848

PATIENT
  Age: 46 Year
  Sex: Male

DRUGS (1)
  1. BEXTRA [Suspect]
     Indication: BACK PAIN
     Dosage: 20 MG (20 MG, 1 IN 1 D), ORAL
     Route: 048
     Dates: start: 20030101, end: 20050407

REACTIONS (7)
  - CARDIOVASCULAR DISORDER [None]
  - CHEST PAIN [None]
  - DEPRESSION [None]
  - RASH [None]
  - SCAR [None]
  - SKIN REACTION [None]
  - SUICIDAL IDEATION [None]
